FAERS Safety Report 9331972 (Version 2)
Quarter: 2014Q1

REPORT INFORMATION
  Report Type: Report from Study
  Country: US (occurrence: US)
  Receive Date: 20130605
  Receipt Date: 20140128
  Transmission Date: 20141002
  Serious: Yes (Other)
  Sender: FDA-Public Use
  Company Number: US-US-EMD SERONO, INC.-7202968

PATIENT
  Age: 42 Year
  Sex: Female

DRUGS (2)
  1. REBIF [Suspect]
     Indication: MULTIPLE SCLEROSIS
     Dates: start: 20120702
  2. REBIF [Suspect]
     Route: 058
     Dates: start: 20130510

REACTIONS (2)
  - Arthritis bacterial [Recovering/Resolving]
  - Vascular rupture [Unknown]
